FAERS Safety Report 21890442 (Version 1)
Quarter: 2023Q1

REPORT INFORMATION
  Report Type: Report from Study
  Country: US (occurrence: US)
  Receive Date: 20230120
  Receipt Date: 20230120
  Transmission Date: 20230418
  Serious: No
  Sender: FDA-Public Use
  Company Number: US-ABBVIE-4243346

PATIENT
  Sex: Male

DRUGS (2)
  1. HUMIRA [Suspect]
     Active Substance: ADALIMUMAB
     Indication: Crohn^s disease
     Dosage: FORM STRENGTH: 40 MG?CITRATE FREE
     Route: 058
     Dates: start: 20220323
  2. HUMIRA [Suspect]
     Active Substance: ADALIMUMAB
     Indication: Crohn^s disease

REACTIONS (2)
  - Illness [Unknown]
  - Adverse drug reaction [Unknown]

NARRATIVE: CASE EVENT DATE: 20220101
